FAERS Safety Report 18001753 (Version 2)
Quarter: 2020Q3

REPORT INFORMATION
  Report Type: Spontaneous
  Country: MY (occurrence: MY)
  Receive Date: 20200709
  Receipt Date: 20200710
  Transmission Date: 20201103
  Serious: Yes (Hospitalization)
  Sender: FDA-Public Use
  Company Number: MY-ABBVIE-20K-101-3461866-00

PATIENT
  Age: 4 Year
  Sex: Male
  Weight: 15.2 kg

DRUGS (8)
  1. VENCLEXTA [Suspect]
     Active Substance: VENETOCLAX
     Route: 048
  2. HEPARINISED SALINE [Concomitant]
     Active Substance: HEPARIN SODIUM
     Indication: FLUSHING
     Dosage: ONCE DAILY WHEN REQUIRED
     Route: 042
     Dates: start: 20200701
  3. VENCLEXTA [Suspect]
     Active Substance: VENETOCLAX
     Indication: ACUTE MYELOID LEUKAEMIA
     Route: 048
  4. VENCLEXTA [Suspect]
     Active Substance: VENETOCLAX
     Indication: JUVENILE CHRONIC MYELOMONOCYTIC LEUKAEMIA
     Route: 048
     Dates: start: 20200623
  5. POTASSIUM CHLORIDE. [Concomitant]
     Active Substance: POTASSIUM CHLORIDE
     Indication: ELECTROLYTE SUBSTITUTION THERAPY
     Dates: start: 20200702
  6. FLAG?IDA [Suspect]
     Active Substance: CYTARABINE\FLUDARABINE\GRANULOCYTE COLONY-STIMULATING FACTOR NOS\IDARUBICIN
     Indication: ACUTE MYELOID LEUKAEMIA
     Dosage: REGIMEN
     Route: 042
     Dates: start: 20200622, end: 20200626
  7. PARACETAMOL [Concomitant]
     Active Substance: ACETAMINOPHEN
     Indication: PYREXIA
     Dosage: FOUR TIMES DAILY WHEN REQUIRED
     Route: 048
     Dates: start: 20200703
  8. NIFEDIPINE. [Concomitant]
     Active Substance: NIFEDIPINE
     Indication: BLOOD PRESSURE MEASUREMENT
     Route: 048

REACTIONS (5)
  - Pyrexia [Not Recovered/Not Resolved]
  - Febrile neutropenia [Recovering/Resolving]
  - Bacterial sepsis [Recovering/Resolving]
  - Vomiting [Unknown]
  - Off label use [Unknown]

NARRATIVE: CASE EVENT DATE: 2020
